FAERS Safety Report 6572810-6 (Version None)
Quarter: 2010Q1

REPORT INFORMATION
  Report Type: 
  Country: None (occurrence: None)
  Receive Date: 20100205
  Receipt Date: 20100128
  Transmission Date: 20100710
  Serious: Yes (Life-Threatening, Hospitalization)
  Sender: FDA-Public Use
  Company Number: CA-AMGEN-QUU387197

PATIENT
  Sex: Female
  Weight: 35 kg

DRUGS (18)
  1. ARANESP [Suspect]
     Indication: RENAL FAILURE CHRONIC
     Route: 042
     Dates: start: 20100119, end: 20100119
  2. CHOLECALCIFEROL [Suspect]
  3. IMMU-G [Concomitant]
  4. CLONAZEPAM [Concomitant]
  5. FUROSEMIDE [Concomitant]
  6. NYSTATIN [Concomitant]
  7. MAGNESIUM OXIDE [Concomitant]
  8. TACROLIMUS [Concomitant]
     Dates: start: 20090714
  9. MYCOPHENOLATE MOFETIL [Concomitant]
     Dates: start: 20090714
  10. PREDNISONE [Concomitant]
     Dates: start: 20090714
  11. VALGANCICLOVIR HCL [Concomitant]
     Dates: start: 20090714
  12. RANITIDINE [Concomitant]
     Dates: start: 20090714
  13. SODIUM BICARBONATE [Concomitant]
     Dates: start: 20090714
  14. AMLODIPINE [Concomitant]
     Dates: start: 20090714
  15. NADOLOL [Concomitant]
     Dates: start: 20090714
  16. DOXAZOSIN MESYLATE [Concomitant]
     Dates: start: 20090714
  17. SEPTRA [Concomitant]
     Dates: start: 20090714
  18. TINZAPARIN SODIUM [Concomitant]
     Dates: start: 20090714

REACTIONS (2)
  - ANAPHYLACTIC REACTION [None]
  - BLOOD CREATININE INCREASED [None]
